FAERS Safety Report 16320201 (Version 1)
Quarter: 2019Q2

REPORT INFORMATION
  Report Type: Spontaneous
  Country: GB (occurrence: GB)
  Receive Date: 20190516
  Receipt Date: 20190516
  Transmission Date: 20190711
  Serious: Yes (Other)
  Sender: FDA-Public Use
  Company Number: GB-CANTON LABORATORIES, LLC-2067068

PATIENT
  Age: 52 Year
  Sex: Male

DRUGS (5)
  1. GAVISCON [Concomitant]
     Active Substance: ALUMINUM HYDROXIDE\MAGNESIUM CARBONATE
     Route: 048
  2. MEBEVERINE [Concomitant]
     Active Substance: MEBEVERINE
     Route: 065
  3. PEPPERMINT OIL [Concomitant]
     Active Substance: PEPPERMINT OIL
     Route: 065
  4. RANITIDINE. [Concomitant]
     Active Substance: RANITIDINE
     Route: 065
  5. NAPROSYN [Suspect]
     Active Substance: NAPROXEN
     Indication: PRODUCT USED FOR UNKNOWN INDICATION
     Route: 048

REACTIONS (6)
  - Hypertension [Unknown]
  - Abdominal pain upper [Unknown]
  - Body temperature abnormal [Unknown]
  - Headache [Unknown]
  - Paraesthesia [Unknown]
  - Constipation [Unknown]
